FAERS Safety Report 5012654-X (Version None)
Quarter: 2006Q2

REPORT INFORMATION
  Report Type: 
  Country: None (occurrence: None)
  Receive Date: 20060411
  Receipt Date: 20060116
  Transmission Date: 20061013
  Serious: No
  Sender: FDA-Public Use
  Company Number: A03200600326

PATIENT
  Age: 75 Year
  Sex: Male

DRUGS (3)
  1. UROXATRAL [Suspect]
     Indication: POLLAKIURIA
     Dosage: 10 MG OD - ORAL
     Route: 048
     Dates: start: 20050801
  2. PREDNISONE [Suspect]
     Indication: RESPIRATORY DISORDER
     Dosage: NI UNK - ORAL
     Route: 048
     Dates: end: 20060102
  3. GLYBURIDE [Concomitant]

REACTIONS (1)
  - BLOOD GLUCOSE INCREASED [None]
